FAERS Safety Report 9224826 (Version 1)
Quarter: 2013Q1

REPORT INFORMATION
  Report Type: Spontaneous
  Country: US (occurrence: None)
  Receive Date: 20120917
  Receipt Date: 20120917
  Transmission Date: 20140127
  Serious: Yes (Other)
  Sender: FDA-Public Use
  Company Number: 2011SP039722

PATIENT
  Age: 27 Year
  Sex: Female
  Weight: 55.34 kg

DRUGS (1)
  1. IMPLANON [Suspect]
     Indication: PRODUCT USED FOR UNKNOWN INDICATION
     Dosage: SC
     Dates: start: 200903

REACTIONS (3)
  - Infertility female [None]
  - Menstruation irregular [None]
  - Implant site fibrosis [None]
